FAERS Safety Report 5057897-4 (Version None)
Quarter: 2006Q3

REPORT INFORMATION
  Report Type: 
  Country: None (occurrence: None)
  Receive Date: 20060721
  Receipt Date: 20060329
  Transmission Date: 20061208
  Serious: No
  Sender: FDA-Public Use
  Company Number: US-GLAXOSMITHKLINE-A0599500A

PATIENT
  Age: 66 Year
  Sex: Female
  Weight: 77.7 kg

DRUGS (8)
  1. AVANDIA [Suspect]
     Dosage: 2MG TWICE PER DAY
     Route: 048
     Dates: start: 20050101
  2. METFORMIN [Suspect]
     Dosage: 500MG TWICE PER DAY
     Route: 048
     Dates: start: 20050101
  3. ARICEPT [Concomitant]
     Dosage: 5MG PER DAY
     Route: 048
  4. VITORIN [Concomitant]
     Route: 048
  5. LOTREL [Concomitant]
     Indication: HYPERTENSION
     Route: 048
  6. SYNTHROID [Concomitant]
     Indication: HYPOTHYROIDISM
     Dosage: .075MG PER DAY
     Route: 048
  7. MILK OF MAGNESIA TAB [Concomitant]
     Indication: CONSTIPATION
  8. AVANDAMET [Concomitant]
     Route: 048

REACTIONS (3)
  - ASTHENIA [None]
  - DRUG INEFFECTIVE [None]
  - MALAISE [None]
